FAERS Safety Report 18468180 (Version 1)
Quarter: 2020Q4

REPORT INFORMATION
  Report Type: Spontaneous
  Country: CN (occurrence: CN)
  Receive Date: 20201105
  Receipt Date: 20201105
  Transmission Date: 20210114
  Serious: Yes (Other)
  Sender: FDA-Public Use
  Company Number: CN-BAYER-2020-234473

PATIENT
  Age: 63 Year
  Sex: Male

DRUGS (5)
  1. ENTECAVIR. [Concomitant]
     Active Substance: ENTECAVIR
     Indication: HEPATITIS B
  2. NORVASC [Concomitant]
     Active Substance: AMLODIPINE BESYLATE
     Indication: HYPERTENSION
  3. NEXAVAR [Suspect]
     Active Substance: SORAFENIB
     Indication: HEPATIC CANCER
     Dosage: 400 MG, BID
     Route: 048
     Dates: start: 20171027, end: 20190204
  4. NEXAVAR [Suspect]
     Active Substance: SORAFENIB
     Indication: HEPATIC CANCER
     Dosage: UNK
     Dates: start: 20190323, end: 20190523
  5. TENOFOVIR [Concomitant]
     Active Substance: TENOFOVIR
     Indication: ANTIVIRAL TREATMENT

REACTIONS (4)
  - Abdominal lymphadenopathy [None]
  - Pancreatitis acute [None]
  - Metastases to peritoneum [None]
  - Retroperitoneal lymphadenopathy [None]

NARRATIVE: CASE EVENT DATE: 20190204
